FAERS Safety Report 6674612-9 (Version None)
Quarter: 2010Q2

REPORT INFORMATION
  Report Type: 
  Country: None (occurrence: None)
  Receive Date: 20100409
  Receipt Date: 20100406
  Transmission Date: 20101027
  Serious: Yes (Death)
  Sender: FDA-Public Use
  Company Number: BE-ROCHE-694487

PATIENT
  Age: 60 Year
  Sex: Male

DRUGS (1)
  1. AVASTIN [Suspect]
     Indication: COLORECTAL CANCER
     Dosage: DOSE, FORM, ROUTE AND FREQUENCY NOT PROVIDED.
     Route: 042
     Dates: start: 20091201

REACTIONS (1)
  - CARDIAC ARREST [None]
